FAERS Safety Report 4821994-6 (Version None)
Quarter: 2005Q4

REPORT INFORMATION
  Report Type: 
  Country: None (occurrence: None)
  Receive Date: 20051107
  Receipt Date: 20051027
  Transmission Date: 20060501
  Serious: Yes (Hospitalization)
  Sender: FDA-Public Use
  Company Number: JP-JNJFOC-20040907979

PATIENT
  Sex: Female

DRUGS (9)
  1. RISPERDAL [Suspect]
     Route: 048
  2. RISPERDAL [Suspect]
     Route: 048
  3. RISPERDAL [Suspect]
     Route: 048
  4. RISPERDAL [Suspect]
     Indication: SCHIZOPHRENIA
     Route: 048
  5. RISPERDAL [Suspect]
     Route: 048
  6. RISPERDAL [Suspect]
     Route: 048
  7. VALPROATE SODIUM [Concomitant]
     Indication: MOOD ALTERED
     Route: 048
  8. BROTIZOLAM [Concomitant]
     Route: 048
  9. BIPERIDEN HYDROCHLORIDE TAB [Concomitant]
     Route: 048

REACTIONS (10)
  - ANXIETY [None]
  - BLOOD CREATINE PHOSPHOKINASE INCREASED [None]
  - BLOOD CREATININE INCREASED [None]
  - BLOOD UREA INCREASED [None]
  - C-REACTIVE PROTEIN INCREASED [None]
  - DEHYDRATION [None]
  - NAUSEA [None]
  - PORIOMANIA [None]
  - PYELONEPHRITIS [None]
  - SCHIZOPHRENIA [None]
